FAERS Safety Report 8550553-7 (Version None)
Quarter: 2012Q3

REPORT INFORMATION
  Report Type: 
  Country: None (occurrence: None)
  Receive Date: 20120730
  Receipt Date: 20120726
  Transmission Date: 20120928
  Serious: Yes (Other)
  Sender: FDA-Public Use
  Company Number: PHHY2012US064735

PATIENT
  Sex: Female

DRUGS (2)
  1. HYDROCHLOROTHIAZIDE [Suspect]
     Dates: end: 20100101
  2. LISINOPRIL [Suspect]
     Dates: end: 20100101

REACTIONS (2)
  - SYSTEMIC LUPUS ERYTHEMATOSUS [None]
  - HYPERTENSION [None]
